FAERS Safety Report 14337821 (Version 1)
Quarter: 2017Q4

REPORT INFORMATION
  Report Type: Spontaneous
  Country: US (occurrence: US)
  Receive Date: 20171228
  Receipt Date: 20171228
  Transmission Date: 20180321
  Serious: No
  Sender: FDA-Public Use
  Company Number: None

PATIENT
  Sex: Female
  Weight: 79.83 kg

DRUGS (3)
  1. OTREXUP [Suspect]
     Active Substance: METHOTREXATE
     Indication: PSORIATIC ARTHROPATHY
     Dosage: 15 MG (0.4ML) Q WEEKLY SUBQ
     Route: 058
     Dates: start: 201707
  2. OTREXUP [Suspect]
     Active Substance: METHOTREXATE
     Indication: OSTEOARTHRITIS
     Dosage: 15 MG (0.4ML) Q WEEKLY SUBQ
     Route: 058
     Dates: start: 201707
  3. OTREXUP [Suspect]
     Active Substance: METHOTREXATE
     Indication: PSORIASIS
     Dosage: 15 MG (0.4ML) Q WEEKLY SUBQ
     Route: 058
     Dates: start: 201707

REACTIONS (1)
  - Bronchitis [None]
